FAERS Safety Report 5915633-0 (Version None)
Quarter: 2008Q4

REPORT INFORMATION
  Report Type: 
  Country: None (occurrence: None)
  Receive Date: 20081010
  Receipt Date: 20081001
  Transmission Date: 20090506
  Serious: Yes (Other)
  Sender: FDA-Public Use
  Company Number: US-ELI_LILLY_AND_COMPANY-US200810000392

PATIENT
  Sex: Male
  Weight: 95.238 kg

DRUGS (10)
  1. BYETTA [Suspect]
     Indication: TYPE 2 DIABETES MELLITUS
     Dosage: 5 UG, 2/D
     Route: 058
     Dates: start: 20051201, end: 20060101
  2. BYETTA [Suspect]
     Dosage: 10 UG, 2/D
     Route: 058
     Dates: start: 20060101
  3. BYETTA [Suspect]
     Dosage: 5 UG, 2/D
     Route: 058
  4. ANTI-DIABETICS [Concomitant]
  5. COREG [Concomitant]
     Indication: CARDIAC DISORDER
     Dosage: 12.5 MG, 2/D
  6. DIOVAN /01319601/ [Concomitant]
     Indication: CARDIAC DISORDER
     Dosage: UNK, DAILY (1/D)
  7. FUROSEMIDE [Concomitant]
     Indication: CARDIAC DISORDER
     Dosage: 40 MG, EACH MORNING
  8. NIASPAN [Concomitant]
     Indication: BLOOD CHOLESTEROL
     Dosage: UNK, DAILY (1/D)
  9. ASACOL [Concomitant]
     Indication: COLITIS ULCERATIVE
     Dosage: UNK, DAILY (1/D)
  10. PLAVIX [Concomitant]
     Indication: CARDIAC DISORDER
     Dosage: UNK, DAILY (1/D)

REACTIONS (6)
  - CORONARY ARTERY REOCCLUSION [None]
  - DECREASED APPETITE [None]
  - HEART RATE DECREASED [None]
  - MEMORY IMPAIRMENT [None]
  - MYOCARDIAL INFARCTION [None]
  - WEIGHT DECREASED [None]
